FAERS Safety Report 23102626 (Version 1)
Quarter: 2023Q4

REPORT INFORMATION
  Report Type: Spontaneous
  Country: US (occurrence: US)
  Receive Date: 20231025
  Receipt Date: 20231025
  Transmission Date: 20240110
  Serious: Yes (Death, Life-Threatening, Hospitalization, Other)
  Sender: FDA-Public Use
  Company Number: US-drreddys-SPO/USA/23/0180281

PATIENT
  Age: 32 Year
  Sex: Male

DRUGS (3)
  1. OXYCODONE HYDROCHLORIDE [Suspect]
     Active Substance: OXYCODONE HYDROCHLORIDE
     Indication: Product used for unknown indication
  2. ALPRAZOLAM [Suspect]
     Active Substance: ALPRAZOLAM
     Indication: Product used for unknown indication
  3. ACETAMINOPHEN [Concomitant]
     Active Substance: ACETAMINOPHEN
     Indication: Product used for unknown indication

REACTIONS (9)
  - Asphyxia [Fatal]
  - Brain injury [Fatal]
  - Respiratory acidosis [Fatal]
  - Foreign body aspiration [Fatal]
  - Hyperkalaemia [Fatal]
  - Hyperglycaemia [Fatal]
  - Metabolic acidosis [Fatal]
  - Hepatic enzyme increased [Fatal]
  - Cardiac arrest [Fatal]
